FAERS Safety Report 7602889-1 (Version None)
Quarter: 2011Q2

REPORT INFORMATION
  Report Type: 
  Country: None (occurrence: None)
  Receive Date: 20110630
  Receipt Date: 20110621
  Transmission Date: 20111010
  Serious: Yes (Hospitalization, Other)
  Sender: FDA-Public Use
  Company Number: 2011001282

PATIENT
  Age: 62 Year
  Sex: Male
  Weight: 53 kg

DRUGS (14)
  1. MAGNESIUM OXIDE (MAGNESIUM OXIDE) [Concomitant]
  2. SULFACARBAMIDE (SULFACACARBAMIDE) [Concomitant]
  3. ERLOTINIB HYDROCHLORIDE [Suspect]
     Indication: HEPATIC NEOPLASM MALIGNANT
     Dosage: 150 MG, UID/QD, ORAL 100 MG, UID/QD, ORAL
     Route: 048
     Dates: start: 20100305, end: 20100503
  4. ERLOTINIB HYDROCHLORIDE [Suspect]
     Indication: HEPATIC NEOPLASM MALIGNANT
     Dosage: 150 MG, UID/QD, ORAL 100 MG, UID/QD, ORAL
     Route: 048
     Dates: start: 20100508
  5. TRANEXAMIC ACID (TRANEXAMIC ACID) [Concomitant]
  6. CEPHALEXIN [Concomitant]
  7. MUCAINE (MUCAINE) [Concomitant]
  8. POLYTAR (COAL TAR) [Concomitant]
  9. SILYMARIN (SILYBUM MARIANUM) [Concomitant]
  10. DEMEROL [Concomitant]
  11. SORAFENIB (SORAVENIB) TABLET [Suspect]
     Indication: HEPATIC NEOPLASM MALIGNANT
     Dosage: 800 MG, UID/QD, ORAL 400 MG, UID/QD, ORAL
     Route: 048
     Dates: start: 20100525
  12. SORAFENIB (SORAVENIB) TABLET [Suspect]
     Indication: HEPATIC NEOPLASM MALIGNANT
     Dosage: 800 MG, UID/QD, ORAL 400 MG, UID/QD, ORAL
     Route: 048
     Dates: start: 20100305, end: 20100521
  13. CEFAZOLIN [Concomitant]
  14. PETHIDINE (PETHIDINE) [Concomitant]

REACTIONS (16)
  - PHLEBOLITH [None]
  - NEPHROLITHIASIS [None]
  - PORTAL VEIN THROMBOSIS [None]
  - HYDRONEPHROSIS [None]
  - CALCULUS URETERIC [None]
  - PYREXIA [None]
  - RESPIRATORY RATE INCREASED [None]
  - EXOSTOSIS [None]
  - OSTEOARTHRITIS [None]
  - RENAL CYST [None]
  - PYELONEPHRITIS ACUTE [None]
  - CHILLS [None]
  - SPINAL OSTEOARTHRITIS [None]
  - HEART RATE INCREASED [None]
  - C-REACTIVE PROTEIN INCREASED [None]
  - PYURIA [None]
